FAERS Safety Report 9681646 (Version 1)
Quarter: 2013Q4

REPORT INFORMATION
  Report Type: Spontaneous
  Country: US (occurrence: US)
  Receive Date: 20131111
  Receipt Date: 20131111
  Transmission Date: 20140711
  Serious: Yes (Other)
  Sender: FDA-Public Use
  Company Number: CHPA2013US016921

PATIENT
  Age: 76 Year
  Sex: Male

DRUGS (2)
  1. MAALOX ANTACID/ANTIGAS MAX LIQ UNKNOWN [Suspect]
     Indication: ULCER
     Dosage: 1 TSP, PRN
     Route: 048
  2. MAALOX ANTACID/ANTIGAS MAX LIQ UNKNOWN [Suspect]
     Indication: OFF LABEL USE

REACTIONS (2)
  - Ulcer [Unknown]
  - Therapeutic response unexpected [Unknown]
